FAERS Safety Report 7912449-0 (Version None)
Quarter: 2011Q4

REPORT INFORMATION
  Report Type: 
  Country: None (occurrence: None)
  Receive Date: 20111114
  Receipt Date: 20111031
  Transmission Date: 20120403
  Serious: Yes (Hospitalization, Disabling)
  Sender: FDA-Public Use
  Company Number: US-MUTUAL PHARMACEUTICAL COMPANY, INC.-CLHC20110049

PATIENT
  Sex: Female

DRUGS (5)
  1. UNKNOWN PRESCRIPTION MEDICATIONS [Concomitant]
     Indication: PRODUCT USED FOR UNKNOWN INDICATION
     Route: 065
  2. COLCHICINE [Suspect]
     Indication: JOINT SWELLING
     Dates: start: 20090804, end: 20090804
  3. COLCHICINE [Suspect]
     Indication: ARTHRALGIA
  4. CHELATION THERAPY [Concomitant]
     Indication: RENAL FAILURE CHRONIC
     Route: 065
     Dates: start: 20090101
  5. GRAPEFRUIT JUICE [Concomitant]
     Indication: PRODUCT USED FOR UNKNOWN INDICATION
     Route: 048

REACTIONS (23)
  - COGNITIVE DISORDER [None]
  - ARTHRALGIA [None]
  - ALOPECIA [None]
  - NAUSEA [None]
  - MYALGIA [None]
  - DIARRHOEA [None]
  - ORGAN FAILURE [None]
  - MUSCLE SPASMS [None]
  - JOINT LOCK [None]
  - BLOOD CREATINE ABNORMAL [None]
  - VOMITING [None]
  - TACHYCARDIA [None]
  - WEIGHT DECREASED [None]
  - ENCEPHALOPATHY [None]
  - AMNESIA [None]
  - TOOTH LOSS [None]
  - BLOOD GLUCOSE ABNORMAL [None]
  - FATIGUE [None]
  - TOXICITY TO VARIOUS AGENTS [None]
  - BLOOD UREA ABNORMAL [None]
  - DEHYDRATION [None]
  - ABDOMINAL PAIN [None]
  - ASTHENIA [None]
